FAERS Safety Report 5078863-9 (Version None)
Quarter: 2006Q3

REPORT INFORMATION
  Report Type: 
  Country: None (occurrence: None)
  Receive Date: 20060809
  Receipt Date: 20060727
  Transmission Date: 20061208
  Serious: Yes (Other)
  Sender: FDA-Public Use
  Company Number: CHPA2006US07379

PATIENT
  Age: 80 Year
  Sex: Female
  Weight: 59.9 kg

DRUGS (3)
  1. TRANSDERM SCOP [Suspect]
     Indication: PROPHYLAXIS AGAINST MOTION SICKNESS
     Dosage: 1.5 MG, Q72H, TRANSDERMAL
     Route: 062
  2. ATENOLOL [Concomitant]
  3. FOSAMAX [Concomitant]

REACTIONS (2)
  - HALLUCINATION [None]
  - INCOHERENT [None]
